FAERS Safety Report 12548373 (Version 1)
Quarter: 2016Q3

REPORT INFORMATION
  Report Type: Spontaneous
  Country: US (occurrence: None)
  Receive Date: 20160711
  Receipt Date: 20160711
  Transmission Date: 20161109
  Serious: Yes (Life-Threatening, Hospitalization, Disabling)
  Sender: FDA-Public Use
  Company Number: None

PATIENT
  Age: 31 Year
  Sex: Female
  Weight: 41.73 kg

DRUGS (4)
  1. HOSPITAL BED [Concomitant]
  2. SLO-BID [Suspect]
     Active Substance: THEOPHYLLINE ANHYDROUS
     Indication: ASTHMA
     Dates: start: 19871105, end: 19880617
  3. WHEELCHAIR [Concomitant]
     Active Substance: DEVICE
  4. G TUBE. MEDS ARE BACLOFEN [Concomitant]

REACTIONS (2)
  - Status epilepticus [None]
  - Brain injury [None]

NARRATIVE: CASE EVENT DATE: 19880717
